FAERS Safety Report 15145536 (Version 1)
Quarter: 2018Q3

REPORT INFORMATION
  Report Type: Spontaneous
  Country: US (occurrence: US)
  Receive Date: 20180713
  Receipt Date: 20180713
  Transmission Date: 20181010
  Serious: No
  Sender: FDA-Public Use
  Company Number: US-009507513-0906USA05786

PATIENT
  Age: 32 Year
  Sex: Female

DRUGS (9)
  1. ISENTRESS [Suspect]
     Active Substance: RALTEGRAVIR POTASSIUM
     Dosage: 800, QD
     Route: 048
  2. ATAZANAVIR SULFATE. [Suspect]
     Active Substance: ATAZANAVIR SULFATE
     Dosage: 300, QD
     Route: 048
  3. EMTRICITABINE [Suspect]
     Active Substance: EMTRICITABINE
     Dosage: UNK
  4. RITONAVIR. [Suspect]
     Active Substance: RITONAVIR
     Dosage: 100, QD
     Route: 048
  5. ENFUVIRTIDE. [Suspect]
     Active Substance: ENFUVIRTIDE
     Dosage: 180, QD
     Route: 058
  6. TENOFOVIR DISOPROXIL FUMARATE. [Suspect]
     Active Substance: TENOFOVIR DISOPROXIL FUMARATE
     Dosage: 1, QD
     Route: 048
  7. LAMIVUDINE. [Suspect]
     Active Substance: LAMIVUDINE
     Dosage: 300, QD
     Route: 048
  8. DARUNAVIR [Suspect]
     Active Substance: DARUNAVIR
     Dosage: 1200, QD
     Route: 048
  9. SAQUINAVIR MESYLATE [Suspect]
     Active Substance: SAQUINAVIR MESYLATE
     Dosage: 2000, QD
     Route: 048

REACTIONS (2)
  - Maternal exposure during pregnancy [Recovered/Resolved]
  - No adverse event [Unknown]
